FAERS Safety Report 18393779 (Version 1)
Quarter: 2020Q4

REPORT INFORMATION
  Report Type: Spontaneous
  Country: US (occurrence: US)
  Receive Date: 20201016
  Receipt Date: 20201016
  Transmission Date: 20210114
  Serious: No
  Sender: FDA-Public Use
  Company Number: US-ELI_LILLY_AND_COMPANY-US202001006993

PATIENT

DRUGS (2)
  1. REYVOW [Suspect]
     Active Substance: LASMIDITAN
     Indication: MIGRAINE
     Dosage: UNK UNK, UNKNOWN
     Route: 065
  2. EMGALITY [Suspect]
     Active Substance: GALCANEZUMAB-GNLM
     Indication: MIGRAINE
     Dosage: 1 DOSAGE FORM, UNKNOWN
     Route: 065
     Dates: start: 201903

REACTIONS (11)
  - Headache [Unknown]
  - Muscular weakness [Unknown]
  - Anxiety [Unknown]
  - Therapeutic response shortened [Unknown]
  - Gait disturbance [Unknown]
  - Eczema [Unknown]
  - Heart rate increased [Unknown]
  - Dizziness [Unknown]
  - Hypoaesthesia [Unknown]
  - Paraesthesia [Unknown]
  - Pruritus [Unknown]
